FAERS Safety Report 10058669 (Version 2)
Quarter: 2014Q2

REPORT INFORMATION
  Report Type: Spontaneous
  Country: DE (occurrence: None)
  Receive Date: 20140402
  Receipt Date: 20140425
  Transmission Date: 20141212
  Serious: Yes (Disabling, Other)
  Sender: FDA-Public Use
  Company Number: 2014-19275

PATIENT
  Age: 83 Year
  Sex: Male
  Weight: 75 kg

DRUGS (6)
  1. EYLEA [Suspect]
     Indication: AGE-RELATED MACULAR DEGENERATION
     Route: 031
     Dates: start: 20140213, end: 20140213
  2. BRONUCK (BROMFENAC SODIUM) EYE DROPS [Concomitant]
  3. CRAVIT (LEVOFLOXACIN) EYE DROPS [Concomitant]
  4. GATIFLO (GATIFLOXACIN) EYE DROPS [Concomitant]
  5. FLUMETHOLON (FLUOROMETHOLONE) EYE DROPS [Concomitant]
  6. RINDERON A (BETAMETHASONE SODIUM PHOSPHATE, NEOMYCIN SULFATE) [Concomitant]

REACTIONS (2)
  - Retinopathy proliferative [None]
  - Retinal detachment [None]
